FAERS Safety Report 23344679 (Version 1)
Quarter: 2023Q4

REPORT INFORMATION
  Report Type: Spontaneous
  Country: JP (occurrence: JP)
  Receive Date: 20231228
  Receipt Date: 20231228
  Transmission Date: 20240109
  Serious: Yes (Other)
  Sender: FDA-Public Use
  Company Number: JP-Accord-397905

PATIENT
  Age: 11 Year
  Sex: Female

DRUGS (3)
  1. OSELTAMIVIR [Suspect]
     Active Substance: OSELTAMIVIR
     Indication: Product used for unknown indication
  2. DEXTROMETHORPHAN [Concomitant]
     Active Substance: DEXTROMETHORPHAN
  3. TIARAMIDE HYDROCHLORIDE [Concomitant]
     Active Substance: TIARAMIDE HYDROCHLORIDE

REACTIONS (3)
  - Cheilitis [Recovered/Resolved]
  - Leukopenia [Unknown]
  - C-reactive protein increased [Unknown]
